FAERS Safety Report 15554883 (Version 1)
Quarter: 2018Q4

REPORT INFORMATION
  Report Type: Spontaneous
  Country: US (occurrence: US)
  Receive Date: 20181022
  Receipt Date: 20181022
  Transmission Date: 20190205
  Serious: No
  Sender: FDA-Public Use
  Company Number: None

PATIENT
  Age: 60 Year
  Sex: Male

DRUGS (1)
  1. TALTZ [Suspect]
     Active Substance: IXEKIZUMAB
     Dates: start: 201804

REACTIONS (5)
  - Skin haemorrhage [None]
  - Swelling [None]
  - Gait disturbance [None]
  - Impaired work ability [None]
  - Psoriasis [None]

NARRATIVE: CASE EVENT DATE: 20180418
